FAERS Safety Report 11749416 (Version 5)
Quarter: 2017Q4

REPORT INFORMATION
  Report Type: Spontaneous
  Country: US (occurrence: US)
  Receive Date: 20151118
  Receipt Date: 20171025
  Transmission Date: 20180320
  Serious: No
  Sender: FDA-Public Use
  Company Number: US-PFIZER INC-2015380177

PATIENT
  Age: 73 Year
  Sex: Female
  Weight: 87.9 kg

DRUGS (1)
  1. LYRICA [Suspect]
     Active Substance: PREGABALIN
     Indication: FIBROMYALGIA
     Dosage: 150 MG, 2X/DAY

REACTIONS (5)
  - Malaise [Unknown]
  - Pain [Unknown]
  - Blood pressure increased [Unknown]
  - Feeling abnormal [Unknown]
  - Stress [Unknown]
